FAERS Safety Report 6662838-X (Version None)
Quarter: 2010Q2

REPORT INFORMATION
  Report Type: 
  Country: None (occurrence: None)
  Receive Date: 20100401
  Receipt Date: 20100324
  Transmission Date: 20101027
  Serious: No
  Sender: FDA-Public Use
  Company Number: 2009BI016315

PATIENT
  Sex: Female

DRUGS (1)
  1. TYSABRI [Suspect]
     Indication: MULTIPLE SCLEROSIS
     Route: 042
     Dates: start: 20061215

REACTIONS (13)
  - BIOPSY UTERUS [None]
  - BRONCHITIS [None]
  - DIABETES MELLITUS [None]
  - FATIGUE [None]
  - FUNGAL INFECTION [None]
  - IMPAIRED DRIVING ABILITY [None]
  - IRRITABLE BOWEL SYNDROME [None]
  - LOCALISED INFECTION [None]
  - MASTITIS [None]
  - MEMORY IMPAIRMENT [None]
  - RESPIRATORY TRACT INFECTION [None]
  - SINUSITIS [None]
  - VAGINAL INFECTION [None]
